FAERS Safety Report 4844643-X (Version None)
Quarter: 2005Q4

REPORT INFORMATION
  Report Type: 
  Country: None (occurrence: None)
  Receive Date: 20051205
  Receipt Date: 20051121
  Transmission Date: 20060501
  Serious: Yes (Hospitalization)
  Sender: FDA-Public Use
  Company Number: DE-BRACCO-BRO-009550

PATIENT
  Sex: Female

DRUGS (2)
  1. MULTIHANCE [Suspect]
     Route: 042
     Dates: start: 20051101, end: 20051101
  2. MULTIHANCE [Suspect]
     Route: 042
     Dates: start: 20051101, end: 20051101

REACTIONS (2)
  - ANGIONEUROTIC OEDEMA [None]
  - PRURITUS [None]
